FAERS Safety Report 4506537-9 (Version None)
Quarter: 2004Q4

REPORT INFORMATION
  Report Type: 
  Country: None (occurrence: None)
  Receive Date: 20041122
  Receipt Date: 20041115
  Transmission Date: 20050328
  Serious: Yes (Hospitalization)
  Sender: FDA-Public Use
  Company Number: 200412604DE

PATIENT
  Age: 68 Year
  Sex: Male

DRUGS (3)
  1. DOCETAXEL [Suspect]
  2. ZOLEDRONIC ACID [Suspect]
     Indication: METASTASES TO BONE
     Route: 042
     Dates: start: 20030905, end: 20040415
  3. MITOXANTRONE [Suspect]

REACTIONS (5)
  - C-REACTIVE PROTEIN [None]
  - PANCYTOPENIA [None]
  - PYREXIA [None]
  - URINARY RETENTION [None]
  - WHITE BLOOD CELLS URINE POSITIVE [None]
